FAERS Safety Report 11124487 (Version 1)
Quarter: 2015Q2

REPORT INFORMATION
  Report Type: Spontaneous
  Country: DE (occurrence: None)
  Receive Date: 20150518
  Receipt Date: 20150518
  Transmission Date: 20150821
  Serious: Yes (Other)
  Sender: FDA-Public Use
  Company Number: INT_00757_2015

PATIENT
  Age: 48 Year
  Sex: Male

DRUGS (6)
  1. ENOXAPARIN [Concomitant]
     Active Substance: ENOXAPARIN
  2. CISPLATIN (CISPLATIN) (HQ SPECIALTY) [Suspect]
     Active Substance: CISPLATIN
     Indication: RETROPERITONEAL NEOPLASM METASTATIC
     Dosage: THREE CYCLES
  3. ETOPOSIDE. [Concomitant]
     Active Substance: ETOPOSIDE
  4. CISPLATIN (CISPLATIN) (HQ SPECIALTY) [Suspect]
     Active Substance: CISPLATIN
     Indication: METASTASES TO THE MEDIASTINUM
     Dosage: THREE CYCLES
  5. CISPLATIN (CISPLATIN) (HQ SPECIALTY) [Suspect]
     Active Substance: CISPLATIN
     Indication: TESTICULAR SEMINOMA (PURE)
     Dosage: THREE CYCLES
  6. BLEOMYCIN [Concomitant]
     Active Substance: BLEOMYCIN SULFATE

REACTIONS (8)
  - Pneumonitis [None]
  - Anaemia [None]
  - Thalamic infarction [None]
  - Renal impairment [None]
  - Splenic infarction [None]
  - Gamma-glutamyltransferase increased [None]
  - Alopecia [None]
  - Portal vein thrombosis [None]
